FAERS Safety Report 9150629 (Version 1)
Quarter: 2013Q1

REPORT INFORMATION
  Report Type: Report from Study
  Country: CA (occurrence: CA)
  Receive Date: 20130308
  Receipt Date: 20130308
  Transmission Date: 20140127
  Serious: Yes (Other)
  Sender: FDA-Public Use
  Company Number: CA-ROCHE-1198999

PATIENT
  Sex: 0

DRUGS (8)
  1. AVASTIN [Suspect]
     Indication: COLORECTAL CANCER
     Route: 065
     Dates: start: 20120229
  2. AVASTIN [Suspect]
     Route: 065
     Dates: end: 20120802
  3. FOLINIC ACID [Suspect]
     Indication: COLORECTAL CANCER
     Route: 065
  4. FOLINIC ACID [Suspect]
     Route: 065
     Dates: end: 20120802
  5. FLUOROURACIL [Suspect]
     Indication: COLORECTAL CANCER
     Route: 065
  6. FLUOROURACIL [Suspect]
     Route: 065
     Dates: end: 20120802
  7. IRINOTECAN [Suspect]
     Indication: COLORECTAL CANCER
     Route: 065
  8. IRINOTECAN [Suspect]
     Route: 065
     Dates: end: 20120802

REACTIONS (2)
  - Infected dermal cyst [Recovered/Resolved]
  - Toxicity to various agents [Unknown]
